FAERS Safety Report 8480611 (Version 4)
Quarter: 2013Q2

REPORT INFORMATION
  Report Type: Report from Study
  Country: IN (occurrence: IN)
  Receive Date: 20120328
  Receipt Date: 20130404
  Transmission Date: 20140414
  Serious: Yes (Life-Threatening)
  Sender: FDA-Public Use
  Company Number: IN-GLAXOSMITHKLINE-A0970864A

PATIENT
  Age: 35 Year
  Sex: Male
  Weight: 47.6 kg

DRUGS (4)
  1. LAPATINIB [Suspect]
     Indication: HEAD AND NECK CANCER
     Dosage: 1500MG PER DAY
     Route: 048
     Dates: start: 20100913, end: 20110906
  2. CISPLATIN [Suspect]
     Indication: HEAD AND NECK CANCER
     Dosage: 100MGM2 CYCLIC
     Route: 042
     Dates: start: 20100917
  3. RADIOTHERAPY [Concomitant]
     Indication: HEAD AND NECK CANCER
     Dosage: 4GY VARIABLE DOSE
     Route: 061
     Dates: start: 20100917
  4. EMSET [Concomitant]
     Indication: VOMITING
     Dosage: 8MG TWICE PER DAY
     Dates: start: 20120319, end: 20120326

REACTIONS (1)
  - Pancreatitis [Recovered/Resolved]
